FAERS Safety Report 6675113-4 (Version None)
Quarter: 2010Q2

REPORT INFORMATION
  Report Type: 
  Country: None (occurrence: None)
  Receive Date: 20100409
  Receipt Date: 20100402
  Transmission Date: 20101027
  Serious: Yes (Disabling, Other)
  Sender: FDA-Public Use
  Company Number: JP-BRACCO-BRO-009649

PATIENT
  Sex: Female
  Weight: 60 kg

DRUGS (8)
  1. IOPAMIDOL [Suspect]
     Indication: MENINGIOMA
     Route: 013
     Dates: start: 20050603, end: 20050603
  2. IOPAMIDOL [Suspect]
     Indication: ANGIOGRAM CEREBRAL
     Route: 013
     Dates: start: 20050603, end: 20050603
  3. IOPAMIDOL [Suspect]
     Indication: GAIT DISTURBANCE
     Route: 013
     Dates: start: 20050603, end: 20050603
  4. HEPARIN [Suspect]
     Indication: DRUG USE FOR UNKNOWN INDICATION
     Route: 013
     Dates: start: 20050603, end: 20050603
  5. XYLOCAINE [Concomitant]
     Dosage: 1%
     Route: 065
     Dates: start: 20050603, end: 20050603
  6. PENTAZOCINE LACTATE [Concomitant]
     Route: 065
     Dates: start: 20050603, end: 20050603
  7. RINGER'S [Concomitant]
     Route: 065
  8. SALINE [Concomitant]
     Route: 065
     Dates: start: 20050603, end: 20050603

REACTIONS (2)
  - HYDROCEPHALUS [None]
  - INTRACRANIAL TUMOUR HAEMORRHAGE [None]
